FAERS Safety Report 5745916-9 (Version None)
Quarter: 2008Q2

REPORT INFORMATION
  Report Type: 
  Country: None (occurrence: None)
  Receive Date: 20080520
  Receipt Date: 20080506
  Transmission Date: 20081010
  Serious: Yes (Hospitalization)
  Sender: FDA-Public Use
  Company Number: 2008BI009350

PATIENT
  Age: 52 Year
  Sex: Male
  Weight: 104.3273 kg

DRUGS (9)
  1. AVONEX [Suspect]
     Indication: MULTIPLE SCLEROSIS
     Dosage: 30 UG; QW; IM
     Route: 030
     Dates: start: 20060710
  2. LISINOPRIL [Concomitant]
  3. VERAPAMIL [Concomitant]
  4. AVODART [Concomitant]
  5. REQUIP [Concomitant]
  6. CELEXA [Concomitant]
  7. DIAZEPAM [Concomitant]
  8. COMBIVENT [Concomitant]
  9. ALBUTEROL [Concomitant]

REACTIONS (5)
  - CHOLELITHIASIS [None]
  - GASTRIC DISORDER [None]
  - PAIN [None]
  - PANCREATITIS [None]
  - PNEUMONIA [None]
